FAERS Safety Report 7786440-1 (Version None)
Quarter: 2011Q3

REPORT INFORMATION
  Report Type: 
  Country: None (occurrence: None)
  Receive Date: 20110928
  Receipt Date: 20110928
  Transmission Date: 20111222
  Serious: Yes (Congenital Anomaly)
  Sender: FDA-Public Use
  Company Number: None

PATIENT
  Sex: Female
  Weight: 53.978 kg

DRUGS (1)
  1. PROLIA [Suspect]
     Indication: OSTEOPOROSIS
     Dosage: 1ST INJECTION 6 MONTHS
     Dates: start: 20110616

REACTIONS (8)
  - INSOMNIA [None]
  - RASH [None]
  - PRURITUS [None]
  - OEDEMA PERIPHERAL [None]
  - ALOPECIA [None]
  - BACK PAIN [None]
  - PAIN IN EXTREMITY [None]
  - ASTHENIA [None]
